FAERS Safety Report 5902862-5 (Version None)
Quarter: 2008Q3

REPORT INFORMATION
  Report Type: 
  Country: None (occurrence: None)
  Receive Date: 20080930
  Receipt Date: 20080923
  Transmission Date: 20090109
  Serious: Yes (Disabling)
  Sender: FDA-Public Use
  Company Number: US-CELGENEUS-163-21880-08091300

PATIENT
  Sex: Male

DRUGS (3)
  1. REVLIMID [Suspect]
     Indication: MULTIPLE MYELOMA
     Route: 048
     Dates: start: 20080903
  2. REVLIMID [Suspect]
     Route: 048
     Dates: start: 20080418, end: 20080903
  3. REVLIMID [Suspect]
     Route: 048
     Dates: start: 20071015, end: 20080418

REACTIONS (2)
  - ABASIA [None]
  - BALANCE DISORDER [None]
